FAERS Safety Report 7377891-8 (Version None)
Quarter: 2011Q1

REPORT INFORMATION
  Report Type: 
  Country: None (occurrence: None)
  Receive Date: 20110328
  Receipt Date: 20110315
  Transmission Date: 20110831
  Serious: Yes (Hospitalization)
  Sender: FDA-Public Use
  Company Number: DE-ACTELION-A-US2011-45377

PATIENT

DRUGS (4)
  1. SPIRONOLACTONE [Concomitant]
  2. VENTAVIS [Suspect]
     Indication: PULMONARY ARTERIAL HYPERTENSION
     Dosage: UNK, 6 TIMES/DAY
     Route: 055
     Dates: start: 20091001
  3. TRACLEER [Concomitant]
     Indication: PULMONARY ARTERIAL HYPERTENSION
     Route: 048
  4. SILDENAFIL [Concomitant]

REACTIONS (9)
  - GASTRITIS EROSIVE [None]
  - CHEST DISCOMFORT [None]
  - DIZZINESS [None]
  - IRON DEFICIENCY ANAEMIA [None]
  - PALPITATIONS [None]
  - RIGHT VENTRICULAR FAILURE [None]
  - RENAL FAILURE ACUTE [None]
  - DYSPNOEA [None]
  - CARDIAC FAILURE [None]
